FAERS Safety Report 7904252-2 (Version None)
Quarter: 2011Q4

REPORT INFORMATION
  Report Type: 
  Country: None (occurrence: None)
  Receive Date: 20111109
  Receipt Date: 20111107
  Transmission Date: 20120403
  Serious: No
  Sender: FDA-Public Use
  Company Number: US-PFIZER INC-2011272235

PATIENT
  Sex: Female
  Weight: 63.492 kg

DRUGS (3)
  1. LORAZEPAM [Concomitant]
     Dosage: UNK
  2. EFFEXOR XR [Suspect]
     Indication: DEPRESSION
     Dosage: 75 MG, 1X/DAY
     Route: 048
     Dates: start: 20030101
  3. EFFEXOR XR [Suspect]
     Indication: POST-TRAUMATIC STRESS DISORDER

REACTIONS (1)
  - MALAISE [None]
